FAERS Safety Report 4487984-0 (Version None)
Quarter: 2004Q4

REPORT INFORMATION
  Report Type: 
  Country: None (occurrence: None)
  Receive Date: 20041025
  Receipt Date: 20041018
  Transmission Date: 20050328
  Serious: Yes (Death, Hospitalization)
  Sender: FDA-Public Use
  Company Number: 2004-00604

PATIENT
  Age: 48 Year
  Sex: Male
  Weight: 50 kg

DRUGS (1)
  1. VELCADE [Suspect]
     Indication: PLASMACYTOMA
     Dosage: IV BOLUS
     Route: 040
     Dates: start: 20040720, end: 20040921

REACTIONS (6)
  - ANAEMIA [None]
  - BLOOD BILIRUBIN INCREASED [None]
  - DISEASE PROGRESSION [None]
  - HAEMOLYSIS [None]
  - JAUNDICE [None]
  - THROMBOCYTOPENIA [None]
